FAERS Safety Report 4753218-2 (Version None)
Quarter: 2005Q3

REPORT INFORMATION
  Report Type: 
  Country: None (occurrence: None)
  Receive Date: 20050824
  Receipt Date: 20050804
  Transmission Date: 20060218
  Serious: Yes (Other)
  Sender: FDA-Public Use
  Company Number: USA0508104667

PATIENT
  Age: 61 Year
  Sex: Female

DRUGS (3)
  1. EVISTA [Suspect]
     Indication: OSTEOPOROSIS
  2. THYROID TAB [Concomitant]
  3. ALLEGRA [Concomitant]

REACTIONS (3)
  - CERVIX CARCINOMA [None]
  - METRORRHAGIA [None]
  - VAGINAL HAEMORRHAGE [None]
